FAERS Safety Report 10544625 (Version 2)
Quarter: 2014Q4

REPORT INFORMATION
  Report Type: Other
  Country: NL (occurrence: NL)
  Receive Date: 20141027
  Receipt Date: 20141027
  Transmission Date: 20150529
  Serious: Yes (Hospitalization)
  Sender: FDA-Public Use
  Company Number: NL-ASTELLAS-2014US014720

PATIENT
  Sex: Male
  Weight: 23 kg

DRUGS (2)
  1. TERAZOSINE [Concomitant]
     Indication: PRODUCT USED FOR UNKNOWN INDICATION
     Dosage: 0.5 DF, ONCE DAILY
     Route: 065
     Dates: start: 2013
  2. VESICARE [Suspect]
     Active Substance: SOLIFENACIN SUCCINATE
     Indication: BLADDER DISORDER
     Route: 065
     Dates: start: 2013, end: 20141001

REACTIONS (2)
  - Nephrotic syndrome [Unknown]
  - Product use issue [Unknown]
